FAERS Safety Report 20472387 (Version 2)
Quarter: 2022Q2

REPORT INFORMATION
  Report Type: Report from Study
  Country: ZA (occurrence: ZA)
  Receive Date: 20220215
  Receipt Date: 20220419
  Transmission Date: 20220721
  Serious: Yes (Hospitalization, Other)
  Sender: FDA-Public Use
  Company Number: ZA-SAARTEMIS-SAC202011240033

PATIENT
  Age: 31 Year
  Sex: Female

DRUGS (9)
  1. TERIFLUNOMIDE [Suspect]
     Active Substance: TERIFLUNOMIDE
     Indication: Relapsing-remitting multiple sclerosis
     Dosage: 14 MG, QD
     Route: 048
     Dates: start: 20200316
  2. TERIFLUNOMIDE [Suspect]
     Active Substance: TERIFLUNOMIDE
     Dosage: 14 MG, QD
     Route: 048
     Dates: start: 20200407
  3. TERIFLUNOMIDE [Suspect]
     Active Substance: TERIFLUNOMIDE
     Dosage: 14 MG, QD
     Route: 048
     Dates: start: 20200704
  4. BOLDOCYNARA [Concomitant]
  5. CLOBAZAM [Concomitant]
     Active Substance: CLOBAZAM
  6. CLOBAZAM [Concomitant]
     Active Substance: CLOBAZAM
     Dosage: 5 MG
     Dates: start: 20211108
  7. FLUOXETINE HYDROCHLORIDE [Concomitant]
     Active Substance: FLUOXETINE HYDROCHLORIDE
     Dosage: 20 MG
  8. RIVOTRIL [Concomitant]
     Active Substance: CLONAZEPAM
  9. PREDNISONE [Concomitant]
     Active Substance: PREDNISONE

REACTIONS (43)
  - Nausea [Recovered/Resolved]
  - Diarrhoea [Recovering/Resolving]
  - Dyspnoea [Recovering/Resolving]
  - Multiple sclerosis relapse [Recovering/Resolving]
  - Multiple sclerosis [Recovering/Resolving]
  - Multiple sclerosis relapse [Unknown]
  - Gait disturbance [Recovering/Resolving]
  - Fatigue [Recovering/Resolving]
  - Vomiting [Not Recovered/Not Resolved]
  - Panic attack [Recovering/Resolving]
  - Dizziness [Not Recovered/Not Resolved]
  - Paraesthesia [Not Recovered/Not Resolved]
  - Hospitalisation [Recovering/Resolving]
  - Hypertension [Not Recovered/Not Resolved]
  - Multiple sclerosis pseudo relapse [Unknown]
  - Anxiety [Unknown]
  - Tremor [Unknown]
  - Tremor [Unknown]
  - Multiple sclerosis [Unknown]
  - Multiple sclerosis relapse [Unknown]
  - Limb injury [Recovering/Resolving]
  - Arthritis [Recovering/Resolving]
  - Decreased appetite [Recovering/Resolving]
  - Gait disturbance [Unknown]
  - Taste disorder [Not Recovered/Not Resolved]
  - Parosmia [Not Recovered/Not Resolved]
  - Chest discomfort [Not Recovered/Not Resolved]
  - Muscular weakness [Recovering/Resolving]
  - Post-acute COVID-19 syndrome [Recovered/Resolved]
  - Muscle fatigue [Not Recovered/Not Resolved]
  - Condition aggravated [Not Recovered/Not Resolved]
  - Muscular weakness [Unknown]
  - Dizziness [Unknown]
  - Fatigue [Not Recovered/Not Resolved]
  - Uterine leiomyoma [Unknown]
  - Menstruation irregular [Unknown]
  - Balance disorder [Unknown]
  - Alopecia [Recovering/Resolving]
  - Headache [Not Recovered/Not Resolved]
  - Arthralgia [Recovering/Resolving]
  - Influenza like illness [Unknown]
  - Aphasia [Unknown]
  - Muscular weakness [Unknown]

NARRATIVE: CASE EVENT DATE: 20200501
